FAERS Safety Report 6073855-5 (Version None)
Quarter: 2009Q1

REPORT INFORMATION
  Report Type: 
  Country: None (occurrence: None)
  Receive Date: 20090209
  Receipt Date: 20090209
  Transmission Date: 20090719
  Serious: No
  Sender: FDA-Public Use
  Company Number: None

PATIENT
  Age: 39 Year
  Sex: Female
  Weight: 72.5755 kg

DRUGS (1)
  1. TREXIMET [Suspect]
     Indication: MIGRAINE
     Dosage: 1 @ BEGINNING OF HEADACHE PO; 2ND PILL IF NEEDED IN 1 HOUR, 1ST TIME TAKEN
     Route: 048
     Dates: start: 20090202, end: 20090203

REACTIONS (7)
  - CONDITION AGGRAVATED [None]
  - HEADACHE [None]
  - IMPAIRED WORK ABILITY [None]
  - NAUSEA [None]
  - PERFORMANCE STATUS DECREASED [None]
  - SENSATION OF HEAVINESS [None]
  - VOMITING [None]
